FAERS Safety Report 5409805-1 (Version None)
Quarter: 2007Q3

REPORT INFORMATION
  Report Type: 
  Country: None (occurrence: None)
  Receive Date: 20070807
  Receipt Date: 20070227
  Transmission Date: 20080115
  Serious: Yes (Other)
  Sender: FDA-Public Use
  Company Number: US-1162505

PATIENT
  Age: 52 Year
  Sex: Male
  Weight: 81.6475 kg

DRUGS (4)
  1. SYSTANE EYE DROPS [Suspect]
     Indication: DRY EYE
     Dosage: (OPHTHALMIC)
     Route: 047
     Dates: start: 20060801, end: 20061215
  2. CRESTOR [Concomitant]
  3. HYDROCHLOROTHIAZIDE [Concomitant]
  4. ASPIRIN [Concomitant]

REACTIONS (3)
  - CELLULITIS [None]
  - EYE INFECTION FUNGAL [None]
  - EYELID INFECTION [None]
